FAERS Safety Report 5630392-7 (Version None)
Quarter: 2008Q1

REPORT INFORMATION
  Report Type: 
  Country: None (occurrence: None)
  Receive Date: 20080219
  Receipt Date: 20080212
  Transmission Date: 20080703
  Serious: Yes (Hospitalization, Other)
  Sender: FDA-Public Use
  Company Number: PHEH2004US06334

PATIENT

DRUGS (27)
  1. ZOMETA [Suspect]
     Indication: METASTASES TO BONE
     Dosage: 4 MG EVERY 4 WEEKS
     Route: 042
     Dates: start: 20020201, end: 20040301
  2. THALIDOMIDE [Concomitant]
     Indication: MULTIPLE MYELOMA
     Dosage: 200 MG, QD
     Dates: start: 20021001, end: 20051010
  3. DEXAMETHASONE TAB [Concomitant]
     Indication: MULTIPLE MYELOMA
     Dosage: 40 MG, QD FOR 4 DAYS EVERY MONTH
     Dates: start: 20020301, end: 20020801
  4. DEXAMETHASONE TAB [Concomitant]
     Dosage: 40 MG QD X 4DAYS/MONTH
     Dates: start: 20021001
  5. DEXAMETHASONE TAB [Concomitant]
     Dates: end: 20040201
  6. FENTANYL [Concomitant]
     Indication: PAIN
     Dosage: 75 MCG/HOUR
     Route: 062
     Dates: start: 20020301
  7. LISINOPRIL [Concomitant]
     Indication: HYPERTENSION
     Dosage: 20 MG, QD
     Dates: start: 20000101
  8. ROXICODONE [Concomitant]
     Indication: PAIN
     Dosage: 5-10 MG EVERY 4 HOURS PRN
     Dates: start: 20020301
  9. PROTONIX [Concomitant]
     Indication: GASTROOESOPHAGEAL REFLUX DISEASE
     Dosage: 20 MG, QD
     Dates: start: 20020301
  10. VITAMIN B6 [Concomitant]
     Indication: MULTIPLE MYELOMA
     Dosage: 50 MG, QD
     Dates: start: 20021001
  11. VINCRISTINE [Concomitant]
     Indication: MULTIPLE MYELOMA
     Dosage: 1.4 MG/M2 EVERY 4 WEEKS
     Dates: start: 20020301, end: 20020801
  12. DOXIL [Concomitant]
     Indication: MULTIPLE MYELOMA
     Dosage: 40 MG/M2 EVERY 4 WEEKS
     Dates: start: 20020301, end: 20020801
  13. LOVENOX [Concomitant]
     Indication: DEEP VEIN THROMBOSIS
     Dosage: 1MG/KG AT 60MG Q12H
     Dates: start: 20021201
  14. PAROXETINE HCL [Concomitant]
     Dosage: 50 MG, QD
  15. DURAGESIC-100 [Concomitant]
     Indication: PAIN
     Dosage: 75 MCG Q72H
     Dates: start: 20020101
  16. DURAGESIC-100 [Concomitant]
     Dosage: 75 MCG Q72H
     Dates: start: 20020101
  17. DURAGESIC-100 [Concomitant]
     Dosage: 75 MCG Q72H
     Dates: start: 20020101
  18. DURAGESIC-100 [Concomitant]
     Dosage: 75 MCG Q72H
     Dates: start: 20020101
  19. DURAGESIC-100 [Concomitant]
     Dosage: 75 MCG Q72H
     Dates: start: 20020101
  20. METOPROLOL TARTRATE [Concomitant]
     Dosage: 12.5 MG, Q12H
     Dates: start: 20020301
  21. THORAZINE [Concomitant]
     Indication: HICCUPS
  22. ALTACE [Concomitant]
     Dosage: 5 MG, QD
     Dates: start: 20020301
  23. ZANTAC [Concomitant]
     Dosage: 150 MG, Q12H
     Dates: start: 20020415
  24. HEPARIN [Concomitant]
     Dosage: 5000 U, BID
     Route: 058
     Dates: start: 20020301
  25. ATIVAN [Concomitant]
     Indication: ANXIETY
     Dosage: 0.5 MG, PRN
     Dates: start: 20020301
  26. PRILOSEC [Concomitant]
     Dosage: 20 MG, QD
     Dates: start: 20020301
  27. ADRIAMYCIN PFS [Concomitant]

REACTIONS (50)
  - ACTINOMYCOSIS [None]
  - ANAEMIA [None]
  - ASTHENIA [None]
  - BLOOD ALBUMIN DECREASED [None]
  - BLOOD CALCIUM DECREASED [None]
  - BLOOD GLUCOSE INCREASED [None]
  - BLOOD POTASSIUM DECREASED [None]
  - BONE DEBRIDEMENT [None]
  - BONE DISORDER [None]
  - BONE LESION [None]
  - CATARACT OPERATION [None]
  - COMPRESSION FRACTURE [None]
  - CONFUSIONAL STATE [None]
  - DEBRIDEMENT [None]
  - DEEP VEIN THROMBOSIS [None]
  - DENTAL FISTULA [None]
  - DYSPHAGIA [None]
  - FATIGUE [None]
  - GASTRITIS [None]
  - GINGIVITIS [None]
  - HYPERBARIC OXYGEN THERAPY [None]
  - IMPAIRED HEALING [None]
  - INSOMNIA [None]
  - JAW DISORDER [None]
  - JAW FRACTURE [None]
  - JAW OPERATION [None]
  - LEUKOENCEPHALOPATHY [None]
  - LOOSE TOOTH [None]
  - OCULAR HYPERTENSION [None]
  - ODYNOPHAGIA [None]
  - OESOPHAGITIS ULCERATIVE [None]
  - ORAL INTAKE REDUCED [None]
  - ORAL PAIN [None]
  - OSTEITIS [None]
  - OSTEOMYELITIS [None]
  - OSTEONECROSIS [None]
  - PAIN [None]
  - PAIN IN JAW [None]
  - PERIODONTAL DISEASE [None]
  - PNEUMONIA [None]
  - PRIMARY SEQUESTRUM [None]
  - SEQUESTRECTOMY [None]
  - SINUS DISORDER [None]
  - SWELLING [None]
  - TONGUE INJURY [None]
  - TOOTH EXTRACTION [None]
  - TOOTH LOSS [None]
  - VOMITING [None]
  - WEIGHT DECREASED [None]
  - WOUND DRAINAGE [None]
